FAERS Safety Report 10265963 (Version 1)
Quarter: 2014Q2

REPORT INFORMATION
  Report Type: Spontaneous
  Country: US (occurrence: US)
  Receive Date: 20140627
  Receipt Date: 20140627
  Transmission Date: 20141212
  Serious: No
  Sender: FDA-Public Use
  Company Number: US-TEVA-490996USA

PATIENT
  Age: 54 Year
  Sex: Female
  Weight: 59.02 kg

DRUGS (1)
  1. PROAIR HFA [Suspect]
     Indication: CHRONIC OBSTRUCTIVE PULMONARY DISEASE
     Dates: start: 20140624

REACTIONS (2)
  - Nervousness [Recovering/Resolving]
  - Nervousness [Recovering/Resolving]
